FAERS Safety Report 5413964-4 (Version None)
Quarter: 2007Q3

REPORT INFORMATION
  Report Type: 
  Country: None (occurrence: None)
  Receive Date: 20070814
  Receipt Date: 20070810
  Transmission Date: 20080115
  Serious: Yes (Other)
  Sender: FDA-Public Use
  Company Number: US-BOEHRINGER INGELHEIM PHARMACEUTICALS, INC.-2007-BP-12561BP

PATIENT
  Sex: Female

DRUGS (17)
  1. SPIRIVA [Suspect]
     Indication: ASTHMA
     Route: 055
     Dates: start: 20070421
  2. PULMICORT [Concomitant]
     Indication: ASTHMA
     Route: 055
  3. FLUTICASONE NASAL SPRAY [Concomitant]
     Indication: SEASONAL ALLERGY
     Route: 045
  4. ALLEGRA [Concomitant]
     Indication: SEASONAL ALLERGY
  5. GLYBURIDE [Concomitant]
     Indication: DIABETES MELLITUS
  6. METFORMIN HCL [Concomitant]
     Indication: DIABETES MELLITUS
  7. TOPROL-XL [Concomitant]
     Indication: HYPERTENSION
  8. HYDROCHLOROTHIAZIDE [Concomitant]
     Indication: HYPERTENSION
  9. MAG 64 [Concomitant]
  10. ALBUTEROL [Concomitant]
     Indication: ASTHMA
  11. FISH OIL [Concomitant]
     Indication: BLOOD CHOLESTEROL INCREASED
  12. POTASSIUM M 20 [Concomitant]
  13. AMITRIPTYLINE HCL [Concomitant]
  14. NITROQUICK [Concomitant]
  15. ASPIRIN [Concomitant]
  16. IRON [Concomitant]
  17. BLACK COHASH ROOT [Concomitant]

REACTIONS (2)
  - SMALL CELL LUNG CANCER STAGE UNSPECIFIED [None]
  - URINARY RETENTION [None]
